FAERS Safety Report 8932787 (Version 2)
Quarter: 2012Q4

REPORT INFORMATION
  Report Type: 
  Country: US (occurrence: US)
  Receive Date: 20121128
  Receipt Date: 20121217
  Transmission Date: 20130627
  Serious: Yes (Hospitalization, Other)
  Sender: FDA-Public Use
  Company Number: US-BAXTER-2012BAX024799

PATIENT
  Age: 82 Year
  Sex: Male

DRUGS (2)
  1. DIANEAL LOW CALCIUM [Suspect]
     Indication: PERITONEAL DIALYSIS
     Route: 033
  2. COUMADIN [Suspect]
     Indication: PULMONARY EMBOLISM
     Route: 065

REACTIONS (8)
  - Pulmonary embolism [Recovering/Resolving]
  - Dementia [Recovering/Resolving]
  - Fall [Recovering/Resolving]
  - Back pain [Recovering/Resolving]
  - Back injury [Recovering/Resolving]
  - Haematemesis [Recovering/Resolving]
  - International normalised ratio increased [Recovering/Resolving]
  - Malaise [Unknown]
